FAERS Safety Report 5431441-1 (Version None)
Quarter: 2007Q3

REPORT INFORMATION
  Report Type: 
  Country: None (occurrence: None)
  Receive Date: 20070830
  Receipt Date: 20070618
  Transmission Date: 20080115
  Serious: No
  Sender: FDA-Public Use
  Company Number: A0657204A

PATIENT
  Sex: Female

DRUGS (4)
  1. WELLBUTRIN [Suspect]
     Dosage: 300MG PER DAY
     Route: 048
     Dates: start: 20070521, end: 20070607
  2. PAXIL [Suspect]
     Indication: DEPRESSION
     Dosage: 20MG PER DAY
     Route: 048
  3. CYMBALTA [Concomitant]
  4. FENTANYL [Concomitant]

REACTIONS (3)
  - HEADACHE [None]
  - LOSS OF LIBIDO [None]
  - PHOTOSENSITIVITY REACTION [None]
